FAERS Safety Report 12650708 (Version 1)
Quarter: 2016Q3

REPORT INFORMATION
  Report Type: Spontaneous
  Country: US (occurrence: US)
  Receive Date: 20160815
  Receipt Date: 20160815
  Transmission Date: 20161109
  Serious: No
  Sender: FDA-Public Use
  Company Number: US-JAZZ-2016-US-004754

PATIENT
  Age: 46 Year
  Sex: Female
  Weight: 118.82 kg

DRUGS (26)
  1. LEVOXYL [Concomitant]
     Active Substance: LEVOTHYROXINE SODIUM
  2. XYREM [Suspect]
     Active Substance: SODIUM OXYBATE
     Indication: SOMNOLENCE
     Dosage: 3 G, BID
     Route: 048
     Dates: start: 200812, end: 200901
  3. PAXIL [Concomitant]
     Active Substance: PAROXETINE HYDROCHLORIDE
  4. OLANZAPINE. [Concomitant]
     Active Substance: OLANZAPINE
  5. SAVELLA [Concomitant]
     Active Substance: MILNACIPRAN HYDROCHLORIDE
  6. LODINE [Concomitant]
     Active Substance: ETODOLAC
  7. LYRICA [Concomitant]
     Active Substance: PREGABALIN
  8. XYREM [Suspect]
     Active Substance: SODIUM OXYBATE
     Dosage: 4.5 G, BID
     Route: 048
     Dates: start: 201105, end: 201204
  9. RITALIN [Concomitant]
     Active Substance: METHYLPHENIDATE HYDROCHLORIDE
  10. NUVIGIL [Concomitant]
     Active Substance: ARMODAFINIL
  11. CONCERTA [Concomitant]
     Active Substance: METHYLPHENIDATE HYDROCHLORIDE
  12. ZOLOFT [Concomitant]
     Active Substance: SERTRALINE HYDROCHLORIDE
  13. XYREM [Suspect]
     Active Substance: SODIUM OXYBATE
     Indication: NARCOLEPSY
     Dosage: 4.5 G, BID
     Route: 048
     Dates: start: 200807, end: 200812
  14. XYREM [Suspect]
     Active Substance: SODIUM OXYBATE
     Dosage: 4.5 G, BID
     Route: 048
     Dates: start: 200901, end: 200907
  15. XYREM [Suspect]
     Active Substance: SODIUM OXYBATE
     Dosage: 4.5 G, QD
     Route: 048
  16. ESGIC [Concomitant]
     Active Substance: ACETAMINOPHEN\BUTALBITAL\CAFFEINE
  17. PATADAY [Concomitant]
     Active Substance: OLOPATADINE HYDROCHLORIDE
  18. ATIVAN [Concomitant]
     Active Substance: LORAZEPAM
  19. XYREM [Suspect]
     Active Substance: SODIUM OXYBATE
     Dosage: 4.5 G, BID
     Route: 048
     Dates: start: 201211
  20. CORTISONE [Concomitant]
     Active Substance: CORTISONE\HYDROCORTISONE
  21. NORFLEX [Concomitant]
     Active Substance: ORPHENADRINE CITRATE
  22. GABAPENTIN. [Concomitant]
     Active Substance: GABAPENTIN
  23. LITHIUM CARBONATE. [Concomitant]
     Active Substance: LITHIUM CARBONATE
  24. RESTASIS [Concomitant]
     Active Substance: CYCLOSPORINE
  25. SINGULAIR [Concomitant]
     Active Substance: MONTELUKAST SODIUM
  26. TYLENOL WITH CODEINE [Concomitant]
     Active Substance: ACETAMINOPHEN\CODEINE PHOSPHATE

REACTIONS (19)
  - Neck pain [Unknown]
  - Hypoaesthesia [Unknown]
  - Ligament rupture [Unknown]
  - Chest discomfort [Unknown]
  - Stress fracture [Unknown]
  - Menopausal symptoms [Unknown]
  - Anxiety [Not Recovered/Not Resolved]
  - Epicondylitis [Unknown]
  - Laceration [Unknown]
  - Pain [Unknown]
  - Intentional product use issue [Unknown]
  - Limb injury [Unknown]
  - Musculoskeletal pain [Unknown]
  - Hypertension [Unknown]
  - Headache [Unknown]
  - Exostosis [Unknown]
  - Dry eye [Unknown]
  - Eye allergy [Unknown]
  - Weight increased [Unknown]

NARRATIVE: CASE EVENT DATE: 2012
